FAERS Safety Report 25560620 (Version 2)
Quarter: 2025Q3

REPORT INFORMATION
  Report Type: Spontaneous
  Country: JP (occurrence: JP)
  Receive Date: 20250715
  Receipt Date: 20250819
  Transmission Date: 20251021
  Serious: Yes (Hospitalization, Other)
  Sender: GLAXOSMITHKLINE
  Company Number: JP-GSKJP-JP2025JPN085092AA

PATIENT
  Age: 75 Year
  Sex: Female
  Weight: 41.7 kg

DRUGS (4)
  1. LAMICTAL [Suspect]
     Active Substance: LAMOTRIGINE
     Indication: Epilepsy
     Dosage: 25 MG, 1D
  2. LAMICTAL [Suspect]
     Active Substance: LAMOTRIGINE
     Dosage: 50 MG, 1D
  3. LEVOTHYROXINE SODIUM [Concomitant]
     Active Substance: LEVOTHYROXINE SODIUM
  4. HERBESSER [Concomitant]
     Active Substance: DILTIAZEM HYDROCHLORIDE

REACTIONS (17)
  - Stevens-Johnson syndrome [Recovered/Resolved]
  - Febrile neutropenia [Recovered/Resolved]
  - Haemophagocytic lymphohistiocytosis [Recovered/Resolved]
  - Drug eruption [Unknown]
  - Bone marrow failure [Unknown]
  - Loss of consciousness [Unknown]
  - Status epilepticus [Unknown]
  - Pancytopenia [Unknown]
  - Rash [Recovering/Resolving]
  - Malaise [Unknown]
  - Chills [Unknown]
  - Lip erosion [Unknown]
  - Erythema [Recovered/Resolved]
  - Liver disorder [Unknown]
  - Muscle spasms [Unknown]
  - Feeling jittery [Unknown]
  - Eye movement disorder [Unknown]

NARRATIVE: CASE EVENT DATE: 20250509
